FAERS Safety Report 9067493 (Version 2)
Quarter: 2013Q4

REPORT INFORMATION
  Report Type: Report from Study
  Country: US (occurrence: US)
  Receive Date: 20130129
  Receipt Date: 20131025
  Transmission Date: 20140711
  Serious: Yes (Hospitalization, Other)
  Sender: FDA-Public Use
  Company Number: PHEH2012US014139

PATIENT
  Age: 49 Year
  Sex: Female

DRUGS (15)
  1. GLEEVEC [Suspect]
     Indication: NEOPLASM MALIGNANT
     Dosage: 400 MG, QD
     Route: 048
     Dates: start: 20120316
  2. BENTYL [Concomitant]
  3. LANTUS [Concomitant]
  4. SYNTHROID [Concomitant]
  5. PROTONIX [Concomitant]
  6. VALTREX [Concomitant]
  7. DIOVAN [Concomitant]
  8. EFFEXOR [Concomitant]
  9. ALLEGRA [Concomitant]
  10. PREMARIN TABLET [Concomitant]
  11. XANAX [Concomitant]
  12. NITROGLYCERIN [Concomitant]
  13. LIPITOR [Concomitant]
  14. GLUCOPHAGE [Concomitant]
     Dosage: UNK UKN, UNK
  15. VANCOMYCIN [Concomitant]

REACTIONS (7)
  - Myalgia [Recovered/Resolved]
  - Diabetes mellitus [Not Recovered/Not Resolved]
  - Aphasia [Not Recovered/Not Resolved]
  - Amnesia [Unknown]
  - Memory impairment [Not Recovered/Not Resolved]
  - Confusional state [Not Recovered/Not Resolved]
  - Fatigue [Not Recovered/Not Resolved]
